FAERS Safety Report 13594206 (Version 6)
Quarter: 2018Q2

REPORT INFORMATION
  Report Type: Spontaneous
  Country: US (occurrence: US)
  Receive Date: 20170530
  Receipt Date: 20180605
  Transmission Date: 20180711
  Serious: No
  Sender: FDA-Public Use
  Company Number: US-PFIZER INC-2017236687

PATIENT
  Age: 67 Year
  Sex: Female
  Weight: 55 kg

DRUGS (2)
  1. IBRANCE [Suspect]
     Active Substance: PALBOCICLIB
     Indication: BREAST CANCER METASTATIC
     Dosage: 125 MG, CYCLIC (D1-D21 Q28 DAYS)
     Route: 048
     Dates: start: 20170512
  2. IBRANCE [Suspect]
     Active Substance: PALBOCICLIB
     Dosage: 125 MG, CYCLIC (D1-D21 Q28 DAYS)
     Route: 048

REACTIONS (11)
  - Drug dose omission [Unknown]
  - Somnolence [Unknown]
  - Stomatitis [Not Recovered/Not Resolved]
  - Full blood count decreased [Unknown]
  - Nausea [Not Recovered/Not Resolved]
  - Oral pain [Not Recovered/Not Resolved]
  - Mouth ulceration [Unknown]
  - Drug hypersensitivity [Unknown]
  - Oral discomfort [Unknown]
  - Alopecia [Unknown]
  - Fatigue [Unknown]
